FAERS Safety Report 14210531 (Version 1)
Quarter: 2017Q4

REPORT INFORMATION
  Report Type: Report from Study
  Country: None (occurrence: CZ)
  Receive Date: 20171121
  Receipt Date: 20171121
  Transmission Date: 20180321
  Serious: Yes (Life-Threatening, Hospitalization)
  Sender: FDA-Public Use
  Company Number: CZ-BIOVITRUM-2009CZ0047

PATIENT
  Age: 2 Year
  Sex: Male
  Weight: 38 kg

DRUGS (1)
  1. ORFADIN [Suspect]
     Active Substance: NITISINONE
     Indication: TYROSINAEMIA
     Route: 048
     Dates: start: 20070305

REACTIONS (6)
  - Hepatocellular carcinoma [Recovered/Resolved]
  - Amino acid level increased [Unknown]
  - Succinylacetone increased [Recovered/Resolved]
  - Liver transplant [Recovered/Resolved]
  - Hepatic adenoma [Recovered/Resolved]
  - Nephropathy [Unknown]

NARRATIVE: CASE EVENT DATE: 20090220
